FAERS Safety Report 9581331 (Version 3)
Quarter: 2013Q4

REPORT INFORMATION
  Report Type: Spontaneous
  Country: US (occurrence: US)
  Receive Date: 20131002
  Receipt Date: 20131104
  Transmission Date: 20140711
  Serious: Yes (Other)
  Sender: FDA-Public Use
  Company Number: US-GLAXOSMITHKLINE-A1043285A

PATIENT
  Age: 78 Year
  Sex: Female

DRUGS (13)
  1. ADVAIR [Suspect]
     Indication: CHRONIC OBSTRUCTIVE PULMONARY DISEASE
     Dosage: 2PUFF TWICE PER DAY
     Route: 055
  2. HCTZ [Concomitant]
  3. AMLODIPINE [Concomitant]
  4. ECOTRIN [Concomitant]
  5. FEMARA [Concomitant]
  6. ZOMETA [Concomitant]
  7. IMITREX [Concomitant]
  8. SPIRIVA [Concomitant]
  9. XOPENEX [Concomitant]
  10. TESSALON PEARLS [Concomitant]
  11. ALPRAZOLAM [Concomitant]
  12. GUIATUSS AC [Concomitant]
  13. ORPHENADRINE [Concomitant]

REACTIONS (3)
  - Mycobacterial infection [Unknown]
  - Off label use [Unknown]
  - Mycobacterium avium complex infection [Unknown]
